FAERS Safety Report 5719927-3 (Version None)
Quarter: 2008Q2

REPORT INFORMATION
  Report Type: 
  Country: None (occurrence: None)
  Receive Date: 20080425
  Receipt Date: 20080425
  Transmission Date: 20081010
  Serious: Yes (Life-Threatening, Other)
  Sender: FDA-Public Use
  Company Number: None

PATIENT
  Age: 42 Year
  Sex: Female
  Weight: 72.5755 kg

DRUGS (3)
  1. ACYCLOVIR [Suspect]
     Indication: HERPES SIMPLEX
     Dosage: 400 MG 3X DAILY PO
     Route: 048
     Dates: start: 20080420, end: 20080420
  2. ACYCLOVIR [Suspect]
     Indication: HERPES ZOSTER
     Dosage: 400 MG 3X DAILY PO
     Route: 048
     Dates: start: 20080420, end: 20080420
  3. ACYCLOVIR [Suspect]
     Indication: ORAL HERPES
     Dosage: 400 MG 3X DAILY PO
     Route: 048
     Dates: start: 20080420, end: 20080420

REACTIONS (13)
  - ABASIA [None]
  - ABDOMINAL PAIN [None]
  - ABDOMINAL PAIN UPPER [None]
  - ANOREXIA [None]
  - ASTHENIA [None]
  - BACK PAIN [None]
  - CHEST PAIN [None]
  - DIARRHOEA [None]
  - DYSPNOEA [None]
  - FATIGUE [None]
  - HYPERSOMNIA [None]
  - PYREXIA [None]
  - VOMITING [None]
